FAERS Safety Report 8264480-6 (Version None)
Quarter: 2012Q2

REPORT INFORMATION
  Report Type: 
  Country: None (occurrence: None)
  Receive Date: 20120406
  Receipt Date: 20120404
  Transmission Date: 20120825
  Serious: No
  Sender: FDA-Public Use
  Company Number: US-PFIZER INC-2012085325

PATIENT
  Age: 80 Year
  Sex: Female

DRUGS (1)
  1. CELEBREX [Suspect]
     Indication: LIMB DISCOMFORT
     Dosage: UNK
     Dates: start: 20120403

REACTIONS (2)
  - MYALGIA [None]
  - PAIN IN EXTREMITY [None]
